FAERS Safety Report 23092167 (Version 9)
Quarter: 2024Q2

REPORT INFORMATION
  Report Type: Spontaneous
  Country: CA (occurrence: CA)
  Receive Date: 20231021
  Receipt Date: 20240507
  Transmission Date: 20240716
  Serious: Yes (Other)
  Sender: FDA-Public Use
  Company Number: CA-CELLTRION INC.-2023CA002612

PATIENT

DRUGS (18)
  1. INFLECTRA [Suspect]
     Active Substance: INFLIXIMAB-DYYB
     Indication: Crohn^s disease
     Dosage: 1000 MG (10 MG/KG), AT 0, 2, 6 THEN EVERY 4 WEEKS
     Route: 042
     Dates: start: 20230215
  2. INFLECTRA [Suspect]
     Active Substance: INFLIXIMAB-DYYB
     Dosage: 1000 MG, AT 0, 2, 6 THEN EVERY 4 WEEKS
     Route: 042
     Dates: start: 20230301
  3. INFLECTRA [Suspect]
     Active Substance: INFLIXIMAB-DYYB
     Dosage: 1000 MG, Q 0, 2, 6 THEN EVERY 4 WEEKS
     Route: 042
     Dates: start: 20230329
  4. INFLECTRA [Suspect]
     Active Substance: INFLIXIMAB-DYYB
     Dosage: 1000 MG, Q 0, 2, 6 THEN EVERY 4 WEEKS
     Route: 042
     Dates: start: 20230425
  5. INFLECTRA [Suspect]
     Active Substance: INFLIXIMAB-DYYB
     Dosage: 1000 MG, Q 0, 2, 6 THEN EVERY 4 WEEKS
     Route: 042
     Dates: start: 20230620
  6. INFLECTRA [Suspect]
     Active Substance: INFLIXIMAB-DYYB
     Dosage: 1000 MG, EVERY 4 WEEKS
     Route: 042
     Dates: start: 20230718
  7. INFLECTRA [Suspect]
     Active Substance: INFLIXIMAB-DYYB
     Dosage: 1000 MG, EVERY 4 WEEKS
     Route: 042
     Dates: start: 20230816
  8. INFLECTRA [Suspect]
     Active Substance: INFLIXIMAB-DYYB
     Dosage: 1000 MG, AFTER 3 WEEKS AND 6 DAYS (PRESCRIBED EVERY 4 WEEKS)
     Route: 042
     Dates: start: 20230912
  9. INFLECTRA [Suspect]
     Active Substance: INFLIXIMAB-DYYB
     Dosage: 1000 MG, AT 0, 2, 6 THEN EVERY 4 WEEKS
     Route: 042
     Dates: start: 20231012
  10. INFLECTRA [Suspect]
     Active Substance: INFLIXIMAB-DYYB
     Dosage: 1000 MG, AFTER 4 WEEKS AND 1 DAY (PRESCRIBED EVERY 4 WEEKS)
     Route: 042
     Dates: start: 20231110
  11. INFLECTRA [Suspect]
     Active Substance: INFLIXIMAB-DYYB
     Dosage: 1000 MG, AFTER 4 WEEKS
     Route: 042
     Dates: start: 20231208
  12. INFLECTRA [Suspect]
     Active Substance: INFLIXIMAB-DYYB
     Dosage: 1000 MG, AFTER 4 WEEKS
     Route: 042
     Dates: start: 20240105
  13. INFLECTRA [Suspect]
     Active Substance: INFLIXIMAB-DYYB
     Dosage: 1000 MG, EVERY 4 WEEKS
     Route: 042
     Dates: start: 20240201
  14. INFLECTRA [Suspect]
     Active Substance: INFLIXIMAB-DYYB
     Dosage: 900 MG, EVERY 4 WEEKS
     Route: 042
     Dates: start: 20240229
  15. INFLECTRA [Suspect]
     Active Substance: INFLIXIMAB-DYYB
     Dosage: 900 MG, EVERY 4 WEEKS
     Route: 042
     Dates: start: 20240328
  16. INFLECTRA [Suspect]
     Active Substance: INFLIXIMAB-DYYB
     Dosage: 900 MG, EVERY 4 WEEKS (DOSAGE ADMINISTERED: 900 MG AFTER 4 WEEKS AND 1 DAY)
     Route: 042
     Dates: start: 20240426
  17. CHOLESTYRAMINE [Concomitant]
     Active Substance: CHOLESTYRAMINE
     Dosage: 4 G, 1X/DAY (POUCH A DAY)
  18. OZEMPIC [Concomitant]
     Active Substance: SEMAGLUTIDE
     Dosage: UNK

REACTIONS (20)
  - Condition aggravated [Recovered/Resolved]
  - Weight decreased [Unknown]
  - Cough [Unknown]
  - Throat irritation [Unknown]
  - Breath sounds abnormal [Unknown]
  - Erythema nodosum [Recovered/Resolved]
  - Arthralgia [Recovered/Resolved]
  - Erythema [Unknown]
  - Pruritus [Unknown]
  - Irritable bowel syndrome [Unknown]
  - Thyroid function test abnormal [Unknown]
  - Memory impairment [Unknown]
  - Hot flush [Unknown]
  - Asthenia [Unknown]
  - Eye pruritus [Unknown]
  - Lacrimation increased [Unknown]
  - Off label use [Unknown]
  - Off label use [Unknown]
  - Off label use [Unknown]
  - Intentional product use issue [Unknown]

NARRATIVE: CASE EVENT DATE: 20230215
